FAERS Safety Report 25502066 (Version 1)
Quarter: 2025Q3

REPORT INFORMATION
  Report Type: Spontaneous
  Country: BH (occurrence: BH)
  Receive Date: 20250702
  Receipt Date: 20250702
  Transmission Date: 20251021
  Serious: Yes (Life-Threatening)
  Sender: ROCHE
  Company Number: US-ROCHE-10000318830

PATIENT
  Age: 58 Year
  Sex: Female

DRUGS (7)
  1. HERCEPTIN [Suspect]
     Active Substance: TRASTUZUMAB
     Indication: Breast cancer metastatic
     Route: 042
  2. HERCEPTIN [Suspect]
     Active Substance: TRASTUZUMAB
     Indication: Sickle cell disease
  3. PERTUZUMAB [Suspect]
     Active Substance: PERTUZUMAB
     Indication: Breast cancer metastatic
     Route: 065
  4. PERTUZUMAB [Suspect]
     Active Substance: PERTUZUMAB
     Indication: Sickle cell disease
  5. PACLITAXEL [Concomitant]
     Active Substance: PACLITAXEL
     Indication: Breast cancer metastatic
  6. PACLITAXEL [Concomitant]
     Active Substance: PACLITAXEL
     Indication: Sickle cell disease
  7. LAPATINIB [Concomitant]
     Active Substance: LAPATINIB

REACTIONS (3)
  - Acute chest syndrome [Unknown]
  - Pruritus [Unknown]
  - Chest discomfort [Unknown]
